FAERS Safety Report 6131514-4 (Version None)
Quarter: 2009Q1

REPORT INFORMATION
  Report Type: 
  Country: None (occurrence: None)
  Receive Date: 20090325
  Receipt Date: 20081029
  Transmission Date: 20090719
  Serious: Yes (Hospitalization)
  Sender: FDA-Public Use
  Company Number: US-BRISTOL-MYERS SQUIBB COMPANY-14332639

PATIENT
  Age: 56 Year
  Sex: Male

DRUGS (6)
  1. ERBITUX [Suspect]
     Indication: COLON CANCER METASTATIC
     Route: 042
     Dates: start: 20080910, end: 20080910
  2. ERBITUX [Suspect]
     Indication: METASTASES TO LIVER
     Route: 042
     Dates: start: 20080910, end: 20080910
  3. TYLENOL [Concomitant]
  4. BENADRYL [Concomitant]
  5. DECADRON [Concomitant]
  6. ALOXI [Concomitant]

REACTIONS (4)
  - BLOOD PRESSURE DECREASED [None]
  - CHEST PAIN [None]
  - HYPERHIDROSIS [None]
  - OXYGEN SATURATION DECREASED [None]
